FAERS Safety Report 5858228-X (Version None)
Quarter: 2008Q3

REPORT INFORMATION
  Report Type: 
  Country: None (occurrence: None)
  Receive Date: 20080826
  Receipt Date: 20080821
  Transmission Date: 20090109
  Serious: Yes (Hospitalization)
  Sender: FDA-Public Use
  Company Number: A0734188A

PATIENT
  Age: 62 Year
  Sex: Female

DRUGS (4)
  1. AVANDIA [Suspect]
     Dosage: 4MG TWICE PER DAY
     Route: 048
     Dates: start: 20020610, end: 20020801
  2. ASPIRIN [Concomitant]
     Dates: start: 20020101
  3. HOMOCYSTEINE (MULTIVIT) [Concomitant]
  4. METOPROLOL TARTRATE [Concomitant]
     Dates: start: 20020101

REACTIONS (4)
  - ACUTE CORONARY SYNDROME [None]
  - ANGINA UNSTABLE [None]
  - MYOCARDIAL INFARCTION [None]
  - RENAL FAILURE [None]
